FAERS Safety Report 6522247-0 (Version None)
Quarter: 2009Q4

REPORT INFORMATION
  Report Type: 
  Country: None (occurrence: None)
  Receive Date: 20091230
  Receipt Date: 20091222
  Transmission Date: 20100525
  Serious: Yes (Other)
  Sender: FDA-Public Use
  Company Number: FR-JNJFOC-20090901747

PATIENT
  Sex: Male
  Weight: 90 kg

DRUGS (5)
  1. RISPERDAL CONSTA [Suspect]
     Indication: DRUG USE FOR UNKNOWN INDICATION
     Route: 030
  2. RISPERDAL CONSTA [Suspect]
     Route: 030
  3. ZOPICLONE [Concomitant]
     Route: 065
  4. NOCTRAN [Concomitant]
     Route: 065
  5. METFORMIN HCL [Concomitant]
     Route: 065

REACTIONS (6)
  - DIABETES MELLITUS [None]
  - HYPERGLYCAEMIA [None]
  - INAPPROPRIATE SCHEDULE OF DRUG ADMINISTRATION [None]
  - INSOMNIA [None]
  - WEIGHT INCREASED [None]
  - WHITE BLOOD CELL COUNT INCREASED [None]
